FAERS Safety Report 15619150 (Version 1)
Quarter: 2018Q4

REPORT INFORMATION
  Report Type: Spontaneous
  Country: US (occurrence: US)
  Receive Date: 20181114
  Receipt Date: 20181114
  Transmission Date: 20190205
  Serious: No
  Sender: FDA-Public Use
  Company Number: US-SA-2018SA311306

PATIENT
  Age: 65 Year
  Sex: Male

DRUGS (1)
  1. LIBTAYO [Suspect]
     Active Substance: CEMIPLIMAB-RWLC
     Indication: SQUAMOUS CELL CARCINOMA OF SKIN
     Dosage: 350 MG, UNK
     Route: 042
     Dates: start: 20181015

REACTIONS (2)
  - Fatigue [Unknown]
  - Eye disorder [Unknown]

NARRATIVE: CASE EVENT DATE: 20181024
